FAERS Safety Report 14568269 (Version 1)
Quarter: 2018Q1

REPORT INFORMATION
  Report Type: Spontaneous
  Country: US (occurrence: US)
  Receive Date: 20180223
  Receipt Date: 20180223
  Transmission Date: 20180509
  Serious: Yes (Hospitalization, Other)
  Sender: FDA-Public Use
  Company Number: US-VERTEX PHARMACEUTICALS-2018-001265

PATIENT
  Sex: Female
  Weight: 63 kg

DRUGS (2)
  1. ORKAMBI [Suspect]
     Active Substance: IVACAFTOR\LUMACAFTOR
     Indication: CYSTIC FIBROSIS
     Dosage: 2 DOSAGE FORM (200/125 MG EACH), BID
     Route: 048
     Dates: start: 20150822, end: 201802
  2. ORKAMBI [Suspect]
     Active Substance: IVACAFTOR\LUMACAFTOR
     Dosage: 1 DOSAGE FORM, BID
     Route: 048
     Dates: start: 201802, end: 20180216

REACTIONS (3)
  - Blood creatine phosphokinase increased [Not Recovered/Not Resolved]
  - Hepatic enzyme increased [Unknown]
  - Pneumonia [Unknown]

NARRATIVE: CASE EVENT DATE: 2018
